FAERS Safety Report 8837481 (Version 1)
Quarter: 2012Q4

REPORT INFORMATION
  Report Type: 
  Country: US (occurrence: US)
  Receive Date: 20121012
  Receipt Date: 20121012
  Transmission Date: 20130627
  Serious: Yes (Hospitalization)
  Sender: FDA-Public Use
  Company Number: US-JNJFOC-20121003811

PATIENT
  Age: 67 Year
  Sex: Male
  Weight: 95.26 kg

DRUGS (11)
  1. EXTRA STRENGTH TYLENOL [Suspect]
     Indication: PAIN
     Route: 048
     Dates: start: 201206
  2. REGULAR STRENGTH TYLENOL [Suspect]
     Indication: PAIN
     Route: 048
  3. PANTOPRAZOLE [Concomitant]
     Indication: GASTRIC DISORDER
     Dosage: since 2 months
     Route: 065
     Dates: start: 2012
  4. SPIRONOLACTONE [Concomitant]
     Indication: FLUID RETENTION
     Dosage: since 2 months
     Route: 065
     Dates: start: 2012
  5. FUROSEMIDE [Concomitant]
     Indication: FLUID RETENTION
     Dosage: since 2 months
     Route: 065
     Dates: start: 2012
  6. KLORCON [Concomitant]
     Indication: ELECTROLYTE SUBSTITUTION THERAPY
     Dosage: since 2 months
     Route: 065
     Dates: start: 2012
  7. GENERLAC [Concomitant]
     Indication: LIVER FUNCTION TEST
     Dosage: since 1 month
     Route: 065
     Dates: start: 2012
  8. SUCRALFATE [Concomitant]
     Indication: GASTRIC DISORDER
     Dosage: since 3-4 months
     Route: 065
     Dates: start: 2012
  9. PROMETHAZINE [Concomitant]
     Indication: GASTRIC DISORDER
     Dosage: one half as needed since 1 month
     Route: 065
     Dates: start: 2012
  10. RANITIDINE [Concomitant]
     Indication: GASTRIC DISORDER
     Dosage: since 2 months
     Route: 065
     Dates: start: 2012
  11. ZANTAC [Concomitant]
     Indication: GASTRIC DISORDER
     Dosage: since 2 months
     Route: 065
     Dates: start: 2012

REACTIONS (1)
  - Hepatic failure [Not Recovered/Not Resolved]
